FAERS Safety Report 25538239 (Version 1)
Quarter: 2025Q3

REPORT INFORMATION
  Report Type: Spontaneous
  Country: EU (occurrence: None)
  Receive Date: 20250710
  Receipt Date: 20250710
  Transmission Date: 20251021
  Serious: Yes (Hospitalization)
  Sender: ORION
  Company Number: None

PATIENT
  Age: 86 Year
  Sex: Male

DRUGS (1)
  1. METHOTREXATE [Suspect]
     Active Substance: METHOTREXATE
     Indication: Rheumatoid arthritis
     Dosage: STRENGTH: 10MG
     Dates: start: 20250612, end: 20250619

REACTIONS (5)
  - Overdose [Recovered/Resolved]
  - Inappropriate schedule of product administration [Recovered/Resolved]
  - Product prescribing error [Recovered/Resolved with Sequelae]
  - Febrile bone marrow aplasia [Recovered/Resolved with Sequelae]
  - Glossitis [Recovering/Resolving]

NARRATIVE: CASE EVENT DATE: 20250612
